FAERS Safety Report 15320474 (Version 1)
Quarter: 2018Q3

REPORT INFORMATION
  Report Type: Spontaneous
  Country: US (occurrence: US)
  Receive Date: 20180821
  Receipt Date: 20180821
  Transmission Date: 20181010
  Serious: Yes (Hospitalization)
  Sender: FDA-Public Use
  Company Number: None

PATIENT
  Age: 41 Year
  Sex: Male
  Weight: 76.5 kg

DRUGS (4)
  1. MULTIVITAMIN D3 [Concomitant]
  2. VALSARTAN 160MG TABLET [Suspect]
     Active Substance: VALSARTAN
     Indication: HYPERTENSION
     Dosage: ?          QUANTITY:1 DF DOSAGE FORM;?
     Route: 048
  3. CALCIUM SUPLEMENT ZOLEDRANIC ACID INFUSION [Concomitant]
  4. RANITIDINE. [Concomitant]
     Active Substance: RANITIDINE

REACTIONS (4)
  - Plasmacytoma [None]
  - Osteoporosis [None]
  - Spinal compression fracture [None]
  - Osteopenia [None]

NARRATIVE: CASE EVENT DATE: 20180118
